FAERS Safety Report 25847723 (Version 1)
Quarter: 2025Q3

REPORT INFORMATION
  Report Type: Spontaneous
  Country: CN (occurrence: CN)
  Receive Date: 20250925
  Receipt Date: 20250925
  Transmission Date: 20251021
  Serious: Yes (Other)
  Sender: BEIGENE
  Company Number: CN-BEIGENE-BGN-2025-016147

PATIENT

DRUGS (2)
  1. BRUKINSA [Suspect]
     Active Substance: ZANUBRUTINIB
     Indication: Product used for unknown indication
  2. BRUKINSA [Suspect]
     Active Substance: ZANUBRUTINIB

REACTIONS (2)
  - Streptococcal urinary tract infection [Not Recovered/Not Resolved]
  - Blood urine present [Unknown]
